FAERS Safety Report 5807600-2 (Version None)
Quarter: 2008Q3

REPORT INFORMATION
  Report Type: 
  Country: None (occurrence: None)
  Receive Date: 20080708
  Receipt Date: 20080623
  Transmission Date: 20090109
  Serious: Yes (Hospitalization)
  Sender: FDA-Public Use
  Company Number: WAES 0806USA08917

PATIENT
  Age: 64 Year
  Sex: Female

DRUGS (6)
  1. PEPCID RPD [Suspect]
     Dosage: 40 MG/DAILY PO
     Route: 048
     Dates: start: 20061205, end: 20061222
  2. ISONIAZID [Suspect]
     Indication: ANTIBIOTIC PROPHYLAXIS
     Dosage: 300 MG/DAILY PO
     Route: 048
     Dates: start: 20061205, end: 20061222
  3. ENBREL [Suspect]
     Indication: RHEUMATOID ARTHRITIS
     Dosage: 25 MG/WKY SC
     Route: 058
     Dates: start: 20061205, end: 20061219
  4. APLACE [Concomitant]
  5. LOXONIN [Concomitant]
  6. PYDOXAL [Concomitant]

REACTIONS (8)
  - ANAEMIA [None]
  - DISSEMINATED INTRAVASCULAR COAGULATION [None]
  - DYSPNOEA [None]
  - HEPATIC FUNCTION ABNORMAL [None]
  - HISTIOCYTOSIS HAEMATOPHAGIC [None]
  - MALAISE [None]
  - RENAL FAILURE ACUTE [None]
  - THROMBOCYTOPENIA [None]
